FAERS Safety Report 19719586 (Version 1)
Quarter: 2021Q3

REPORT INFORMATION
  Report Type: Spontaneous
  Country: ES (occurrence: ES)
  Receive Date: 20210818
  Receipt Date: 20210818
  Transmission Date: 20211014
  Serious: Yes (Life-Threatening, Hospitalization)
  Sender: FDA-Public Use
  Company Number: ES-MYLANLABS-2021M1041565

PATIENT
  Age: 69 Year
  Sex: Male

DRUGS (6)
  1. ACETYLSALICYLIC ACID [Suspect]
     Active Substance: ASPIRIN
     Indication: ANTIPLATELET THERAPY
     Dosage: 300 MILLIGRAM
     Route: 065
  2. HEPARIN [Suspect]
     Active Substance: HEPARIN SODIUM
     Indication: ANTICOAGULANT THERAPY
     Dosage: 8000 INTERNATIONAL UNIT, UNIQUE DOSE
     Route: 042
     Dates: start: 20200801, end: 20200810
  3. ACETYLSALICYLIC ACID [Suspect]
     Active Substance: ASPIRIN
     Indication: ACUTE CORONARY SYNDROME
     Dosage: 100 MILLIGRAM, QD
     Route: 065
     Dates: start: 20200801, end: 20200810
  4. TICAGRELOR. [Suspect]
     Active Substance: TICAGRELOR
     Indication: ACUTE CORONARY SYNDROME
     Dosage: 90 MILLIGRAM, BID
     Route: 065
     Dates: start: 20200801, end: 20200810
  5. HEPARIN [Suspect]
     Active Substance: HEPARIN SODIUM
     Indication: ACUTE CORONARY SYNDROME
  6. TICAGRELOR. [Suspect]
     Active Substance: TICAGRELOR
     Indication: ANTIPLATELET THERAPY
     Dosage: 180 MILLIGRAM
     Route: 065

REACTIONS (5)
  - Spinal cord compression [Recovered/Resolved]
  - Spinal epidural haematoma [Recovered/Resolved]
  - Quadriparesis [Recovered/Resolved]
  - Hypotension [Recovered/Resolved]
  - Spinal epidural haemorrhage [Recovered/Resolved]
